FAERS Safety Report 23430956 (Version 2)
Quarter: 2024Q1

REPORT INFORMATION
  Report Type: Report from Study
  Country: GB (occurrence: GB)
  Receive Date: 20240123
  Receipt Date: 20240129
  Transmission Date: 20240410
  Serious: Yes (Other)
  Sender: FDA-Public Use
  Company Number: GB-SANDOZ-SDZ2023GB037374

PATIENT
  Sex: Male

DRUGS (1)
  1. HYRIMOZ [Suspect]
     Active Substance: ADALIMUMAB-ADAZ
     Indication: Rheumatoid arthritis
     Dosage: 40 MG, EOW
     Route: 058

REACTIONS (4)
  - Precancerous skin lesion [Unknown]
  - Malignant melanoma [Recovered/Resolved]
  - Arthralgia [Unknown]
  - Pain [Unknown]
